FAERS Safety Report 4614093-X (Version None)
Quarter: 2005Q1

REPORT INFORMATION
  Report Type: 
  Country: None (occurrence: None)
  Receive Date: 20050316
  Receipt Date: 20050301
  Transmission Date: 20050727
  Serious: Yes (Hospitalization)
  Sender: FDA-Public Use
  Company Number: 2001005123-FJ

PATIENT
  Age: 15 Year
  Sex: Male

DRUGS (3)
  1. TACROLIMUS CAPSULES(TACROLIMUS CAPSULES) CAPSULE [Suspect]
     Indication: RENAL TRANSPLANT
     Dosage: 8.50 MG, BID, ORAL; SEE IMAGE
     Route: 048
     Dates: start: 20000813, end: 20000817
  2. TACROLIMUS CAPSULES(TACROLIMUS CAPSULES) CAPSULE [Suspect]
     Indication: RENAL TRANSPLANT
     Dosage: 8.50 MG, BID, ORAL; SEE IMAGE
     Route: 048
     Dates: start: 20000817, end: 20000903
  3. TACROLIMUS CAPSULES(TACROLIMUS CAPSULES) CAPSULE [Suspect]
     Indication: RENAL TRANSPLANT
     Dosage: 8.50 MG, BID, ORAL; SEE IMAGE
     Route: 048
     Dates: start: 20000904

REACTIONS (1)
  - HAEMOLYTIC ANAEMIA [None]
